FAERS Safety Report 17203025 (Version 2)
Quarter: 2020Q1

REPORT INFORMATION
  Report Type: Spontaneous
  Country: US (occurrence: US)
  Receive Date: 20191226
  Receipt Date: 20200114
  Transmission Date: 20200409
  Serious: Yes (Other)
  Sender: FDA-Public Use
  Company Number: US-ASTRAZENECA-2019SF85072

PATIENT
  Sex: Female
  Weight: 88 kg

DRUGS (7)
  1. SYNTHROID [Suspect]
     Active Substance: LEVOTHYROXINE SODIUM
     Indication: DIABETIC NEUROPATHY
     Route: 048
  2. LYRICA [Suspect]
     Active Substance: PREGABALIN
  3. PROTONIX [Concomitant]
     Active Substance: PANTOPRAZOLE SODIUM
     Indication: CHRONIC GASTRITIS
  4. SINGULAIR [Suspect]
     Active Substance: MONTELUKAST SODIUM
     Route: 045
  5. ELIQUIS [Suspect]
     Active Substance: APIXABAN
  6. LORATADINE. [Suspect]
     Active Substance: LORATADINE
  7. SYMBICORT [Suspect]
     Active Substance: BUDESONIDE\FORMOTEROL FUMARATE DIHYDRATE
     Route: 055

REACTIONS (9)
  - Hypertension [Unknown]
  - Cardiovascular disorder [Unknown]
  - Diabetes mellitus [Unknown]
  - Diabetic neuropathy [Unknown]
  - Dyspnoea [Unknown]
  - Single functional kidney [Unknown]
  - Coronary artery occlusion [Unknown]
  - Asthma [Unknown]
  - Gastric disorder [Unknown]
